FAERS Safety Report 4608065-9 (Version None)
Quarter: 2005Q2

REPORT INFORMATION
  Report Type: 
  Country: None (occurrence: None)
  Receive Date: 20050303
  Receipt Date: 20041102
  Transmission Date: 20051028
  Serious: No
  Sender: FDA-Public Use
  Company Number: 210211

PATIENT
  Age: 45 Year
  Sex: Female
  Weight: 68 kg

DRUGS (6)
  1. XOLAIR [Suspect]
     Indication: ASTHMA
     Dosage: 150 MG, 1/MONTH, INTRAMUSCULAR
     Route: 030
     Dates: start: 20031001
  2. ACCOLATE [Concomitant]
  3. FLOVENT [Concomitant]
  4. FORADIL [Concomitant]
  5. PROVENTIL (ALBUTEROL SULFATE, ALBUTEROL) [Concomitant]
  6. DYAZIDE [Concomitant]

REACTIONS (1)
  - CYSTITIS INTERSTITIAL [None]
